FAERS Safety Report 9226285 (Version 2)
Quarter: 2014Q2

REPORT INFORMATION
  Report Type: Spontaneous
  Country: US (occurrence: US)
  Receive Date: 20130411
  Receipt Date: 20140604
  Transmission Date: 20141212
  Serious: Yes (Hospitalization)
  Sender: FDA-Public Use
  Company Number: US-B.I. PHARMACEUTICALS,INC./RIDGEFIELD-2013-BI-09511BP

PATIENT
  Age: 84 Year
  Sex: Female
  Weight: 60 kg

DRUGS (8)
  1. CATAPRES [Suspect]
     Indication: HYPERTENSION
     Dosage: 0.3 MG
     Route: 065
  2. CELEBREX [Suspect]
     Indication: ARTHRALGIA
     Dosage: 200 MG
     Route: 048
     Dates: start: 2013
  3. POTASSIUM [Concomitant]
     Dosage: 18 MEQ
     Route: 065
  4. TRAMADOL [Concomitant]
     Route: 065
  5. NEXIUM [Concomitant]
     Dosage: 40 MG
     Route: 065
  6. FUROSEMIDE [Concomitant]
     Dosage: 40 MG
     Route: 065
  7. CITALOPRAM [Concomitant]
     Dosage: 20 MG
     Route: 065
  8. SIMVASTATIN [Concomitant]
     Dosage: 40 MG
     Route: 065

REACTIONS (2)
  - Cerebrovascular accident [Unknown]
  - Blood pressure inadequately controlled [Unknown]
